FAERS Safety Report 9576263 (Version 2)
Quarter: 2013Q4

REPORT INFORMATION
  Report Type: Spontaneous
  Country: US (occurrence: US)
  Receive Date: 20131001
  Receipt Date: 20131001
  Transmission Date: 20140711
  Serious: No
  Sender: FDA-Public Use
  Company Number: US-AMGEN-USASP2013000838

PATIENT
  Age: 55 Year
  Sex: Male

DRUGS (6)
  1. ENBREL [Suspect]
     Indication: PSORIASIS
     Dosage: 50 MG, 2 TIMES/WK
     Route: 058
     Dates: start: 20121228, end: 20121231
  2. LISINOPRIL [Concomitant]
     Dosage: 2.5 MG, UNK
  3. SIMVASTATIN [Concomitant]
     Dosage: 40 MG, UNK
  4. VECTICAL [Concomitant]
     Dosage: 3 MCG/GM
  5. CLOBEX                             /00012002/ [Concomitant]
     Dosage: 0.05 %, UNK
  6. BUPROPION [Concomitant]
     Dosage: 150 MG, ER

REACTIONS (1)
  - Nasopharyngitis [Not Recovered/Not Resolved]
